FAERS Safety Report 4803239-6 (Version None)
Quarter: 2005Q3

REPORT INFORMATION
  Report Type: 
  Country: None (occurrence: None)
  Receive Date: 20050929
  Receipt Date: 20050830
  Transmission Date: 20060218
  Serious: Yes (Hospitalization)
  Sender: FDA-Public Use
  Company Number: 05P-163-0309809-00

PATIENT
  Age: 66 Year
  Sex: Male
  Weight: 114 kg

DRUGS (8)
  1. HUMIRA [Suspect]
     Indication: RHEUMATOID ARTHRITIS
     Dosage: 40 MG, 1 IN 2 WK, SUBCUTANEOUS
     Route: 058
     Dates: start: 20030101, end: 20050821
  2. HUMIRA [Suspect]
     Indication: RHEUMATOID ARTHRITIS
     Dosage: 40 MG, 1 IN 2 WK, SUBCUTANEOUS
     Route: 058
     Dates: start: 20050830
  3. VICODIN [Concomitant]
  4. PANTOPRAZOLE [Concomitant]
  5. ZELCOR [Concomitant]
  6. ACETYLSALICYLIC ACID SRT [Concomitant]
  7. BLOOD PRESSURE PILL [Concomitant]
  8. FUROSEMIDE [Concomitant]

REACTIONS (1)
  - PNEUMONIA [None]
